FAERS Safety Report 12692079 (Version 1)
Quarter: 2016Q3

REPORT INFORMATION
  Report Type: Spontaneous
  Country: US (occurrence: US)
  Receive Date: 20160827
  Receipt Date: 20160827
  Transmission Date: 20161109
  Serious: No
  Sender: FDA-Public Use
  Company Number: US-009507513-1608USA005962

PATIENT
  Age: 18 Year
  Sex: Female
  Weight: 65.76 kg

DRUGS (1)
  1. NEXPLANON [Suspect]
     Active Substance: ETONOGESTREL
     Dosage: DOSE/FREQUENCY: EVERY 3 YEARS/THERAPY ROUTE: LEFT ARM-IMPLANT
     Dates: start: 20130409

REACTIONS (4)
  - Menorrhagia [Unknown]
  - Weight increased [Unknown]
  - Muscle spasms [Unknown]
  - Incorrect drug administration duration [Unknown]
